FAERS Safety Report 7476198-8 (Version None)
Quarter: 2011Q2

REPORT INFORMATION
  Report Type: 
  Country: None (occurrence: None)
  Receive Date: 20110505
  Receipt Date: 20110429
  Transmission Date: 20111010
  Serious: Yes (Hospitalization)
  Sender: FDA-Public Use
  Company Number: 2011030099

PATIENT
  Age: 59 Year
  Sex: Female

DRUGS (9)
  1. GABAPENTIN [Concomitant]
  2. AMBIEN [Concomitant]
  3. ONSOLIS [Suspect]
     Indication: CANCER PAIN
     Dosage: SEE IMAGE
     Route: 002
     Dates: start: 20100814, end: 20100823
  4. ONSOLIS [Suspect]
     Indication: CANCER PAIN
     Dosage: SEE IMAGE
     Route: 002
     Dates: start: 20100924, end: 20110130
  5. ONSOLIS [Suspect]
     Indication: CANCER PAIN
     Dosage: SEE IMAGE
     Route: 002
     Dates: start: 20110131
  6. FENTORA [Concomitant]
  7. OXYCONTIN [Concomitant]
  8. AMITRIPTYLINE HCL [Concomitant]
  9. OXYCODONE HCL [Concomitant]

REACTIONS (3)
  - BLADDER OPERATION [None]
  - PROCEDURAL PAIN [None]
  - MUSCULOSKELETAL CHEST PAIN [None]
